FAERS Safety Report 6869017-1 (Version None)
Quarter: 2010Q3

REPORT INFORMATION
  Report Type: 
  Country: None (occurrence: None)
  Receive Date: 20100722
  Receipt Date: 20080619
  Transmission Date: 20110219
  Serious: No
  Sender: FDA-Public Use
  Company Number: US-PFIZER INC-2008053931

PATIENT
  Sex: Female
  Weight: 68.181 kg

DRUGS (8)
  1. CHANTIX [Suspect]
     Indication: EX-TOBACCO USER
     Dates: start: 20080613, end: 20080617
  2. LISINOPRIL [Concomitant]
     Indication: HYPERTENSION
  3. CELEBREX [Concomitant]
     Indication: SHOULDER OPERATION
  4. CELEBREX [Concomitant]
     Indication: ARTHROPATHY
  5. DETROL [Concomitant]
     Indication: POLLAKIURIA
  6. FEXOFENADINE [Concomitant]
     Indication: SINUS DISORDER
  7. ASTELIN [Concomitant]
     Indication: SINUS DISORDER
  8. AMBIEN [Concomitant]

REACTIONS (3)
  - ABDOMINAL PAIN UPPER [None]
  - INFLUENZA LIKE ILLNESS [None]
  - SOMNOLENCE [None]
